FAERS Safety Report 4766373-5 (Version None)
Quarter: 2005Q3

REPORT INFORMATION
  Report Type: 
  Country: None (occurrence: None)
  Receive Date: 20050909
  Receipt Date: 20050829
  Transmission Date: 20060218
  Serious: Yes (Hospitalization)
  Sender: FDA-Public Use
  Company Number: MK200508-0336-1

PATIENT
  Age: 63 Year
  Sex: Female
  Weight: 55.7924 kg

DRUGS (1)
  1. OPTIRAY 300 [Suspect]
     Indication: COMPUTERISED TOMOGRAM THORAX
     Dosage: 100 MG, SINGLE USE
     Dates: start: 20050825, end: 20050825

REACTIONS (7)
  - ANAPHYLACTIC SHOCK [None]
  - CONVULSION [None]
  - DYSPNOEA [None]
  - FALL [None]
  - FEELING HOT [None]
  - POST PROCEDURAL COMPLICATION [None]
  - VENTRICULAR FIBRILLATION [None]
